FAERS Safety Report 8978253 (Version 3)
Quarter: 2013Q1

REPORT INFORMATION
  Report Type: Spontaneous
  Country: US (occurrence: None)
  Receive Date: 20120914
  Receipt Date: 20130104
  Transmission Date: 20140127
  Serious: Yes (Hospitalization)
  Sender: FDA-Public Use
  Company Number: 30153

PATIENT
  Age: 77 Year
  Sex: Male
  Weight: 71.67 kg

DRUGS (12)
  1. GLASSIA [Suspect]
     Indication: ALPHA-1 ANTI-TRYPSIN DEFICIENCY
     Dosage: 4000-4200MG, WEEKLY, IV
     Route: 042
     Dates: start: 2010
  2. ALBUTEROL [Concomitant]
  3. ASPIRIN [Concomitant]
  4. LYSINE [Concomitant]
  5. MAGNESIUM GLYCINATE [Concomitant]
  6. MULTI-DAY VITAMINS [Concomitant]
  7. TIOTROPIUM [Concomitant]
  8. CALCIUM +D [Concomitant]
  9. FLUTICASONE [Concomitant]
  10. FLUTICASONE-SALMETEROL (ADVAIR DISKUS) [Concomitant]
  11. FLUTICASONE-SALMETEROL (ADVAIR DISKUS) 500-50MCG [Concomitant]
  12. VITAMIN C [Concomitant]

REACTIONS (7)
  - Lower respiratory tract infection bacterial [None]
  - Serratia infection [None]
  - Chronic obstructive pulmonary disease [None]
  - Sinusitis [None]
  - Bronchitis [None]
  - Pathogen resistance [None]
  - Pneumonia [None]
